FAERS Safety Report 6031557-5 (Version None)
Quarter: 2009Q1

REPORT INFORMATION
  Report Type: 
  Country: None (occurrence: None)
  Receive Date: 20090108
  Receipt Date: 20081229
  Transmission Date: 20090719
  Serious: Yes (Death, Other)
  Sender: FDA-Public Use
  Company Number: GR-PFIZER INC-2008078830

PATIENT

DRUGS (1)
  1. SILDENAFIL CITRATE [Suspect]

REACTIONS (1)
  - SUDDEN DEATH [None]
